FAERS Safety Report 7386725-7 (Version None)
Quarter: 2011Q1

REPORT INFORMATION
  Report Type: 
  Country: None (occurrence: None)
  Receive Date: 20110331
  Receipt Date: 20110321
  Transmission Date: 20110831
  Serious: Yes (Hospitalization)
  Sender: FDA-Public Use
  Company Number: US-JNJFOC-20100305000

PATIENT
  Sex: Male
  Weight: 94.2 kg

DRUGS (21)
  1. PLACEBO [Suspect]
     Indication: DIABETIC NEUROPATHY
     Route: 048
  2. TAPENTADOL [Suspect]
     Route: 048
  3. TAPENTADOL [Suspect]
     Indication: DIABETIC NEUROPATHY
     Route: 048
  4. TAPENTADOL [Suspect]
     Route: 048
  5. DONEPEZIL HYDROCHLORIDE [Concomitant]
     Indication: MEMORY IMPAIRMENT
     Dosage: ONCE A DAY
     Route: 048
  6. ASPIRIN [Concomitant]
     Indication: CORONARY ARTERY DISEASE
     Dosage: ONCE A DAY
     Route: 048
  7. TAPENTADOL [Suspect]
     Indication: DIABETIC NEUROPATHY
     Route: 048
  8. OMEPRAZOLE [Concomitant]
     Indication: GASTROOESOPHAGEAL REFLUX DISEASE
     Dosage: ONCE A DAY
     Route: 048
  9. SIMVASTATIN [Concomitant]
     Indication: HYPERCHOLESTEROLAEMIA
     Dosage: ONCE A DAY
     Route: 048
  10. PREGABALIN [Concomitant]
     Indication: DIABETIC NEUROPATHY
     Dosage: ONCE A DAY
     Route: 048
  11. VITAMIN B-12 [Concomitant]
     Indication: MEDICAL DIET
     Dosage: ONCE A DAY
     Route: 048
  12. GABAPENTIN [Concomitant]
     Indication: DIABETIC NEUROPATHY
     Dosage: ONCE A DAY
     Route: 048
  13. LORTAB [Concomitant]
     Indication: ARTHRALGIA
     Route: 065
  14. MULTI-VITAMINS [Concomitant]
     Indication: NUTRITIONAL SUPPORT
     Dosage: ONCE A DAY
     Route: 048
  15. OCUVITE NOS [Concomitant]
     Indication: NUTRITIONAL SUPPORT
     Dosage: ONCE A DAY
     Route: 048
  16. GLIPIZIDE [Concomitant]
     Route: 065
  17. FINASTERIDE [Concomitant]
     Indication: BENIGN PROSTATIC HYPERPLASIA
     Dosage: ONCE A DAY
     Route: 048
  18. FELODIPINE [Concomitant]
     Indication: CORONARY ARTERY DISEASE
     Dosage: ONCE A DAY
     Route: 048
  19. ISOSORBIDE DINITRATE [Concomitant]
     Indication: CORONARY ARTERY DISEASE
     Dosage: ONCE A DAY
     Route: 048
  20. VALSARTAN [Concomitant]
     Indication: HYPERTENSION
     Dosage: ONCE A DAY
     Route: 048
  21. VITAMIN E (TOCOPHERYL ACETATE) [Concomitant]
     Indication: MEDICAL DIET
     Dosage: ONCE A DAY
     Route: 048

REACTIONS (5)
  - TRAUMATIC BRAIN INJURY [None]
  - CONTUSION [None]
  - BALANCE DISORDER [None]
  - SKULL FRACTURED BASE [None]
  - SUBDURAL HAEMATOMA [None]
